FAERS Safety Report 11832488 (Version 1)
Quarter: 2015Q4

REPORT INFORMATION
  Report Type: Spontaneous
  Country: US (occurrence: US)
  Receive Date: 20151214
  Receipt Date: 20151214
  Transmission Date: 20160305
  Serious: No
  Sender: FDA-Public Use
  Company Number: US-PFIZER INC-2015419189

PATIENT
  Sex: Male

DRUGS (1)
  1. VIAGRA [Suspect]
     Active Substance: SILDENAFIL CITRATE
     Indication: PENIS DISORDER
     Dosage: 50 MG TABLET FEW TIMES
     Route: 048

REACTIONS (3)
  - Semen volume increased [Unknown]
  - Ejaculation disorder [Unknown]
  - Penis disorder [Not Recovered/Not Resolved]
